FAERS Safety Report 7691051-2 (Version None)
Quarter: 2011Q3

REPORT INFORMATION
  Report Type: 
  Country: None (occurrence: None)
  Receive Date: 20110818
  Receipt Date: 20110816
  Transmission Date: 20111222
  Serious: Yes (Other)
  Sender: FDA-Public Use
  Company Number: US-PFIZER INC-2011127435

PATIENT
  Sex: Male
  Weight: 102 kg

DRUGS (1)
  1. CHANTIX [Suspect]
     Indication: SMOKING CESSATION THERAPY
     Dosage: 0.5 MG, UNK
     Route: 048
     Dates: start: 20110527, end: 20110609

REACTIONS (4)
  - FEELING ABNORMAL [None]
  - PANIC ATTACK [None]
  - PERSONALITY CHANGE [None]
  - DECREASED INTEREST [None]
